FAERS Safety Report 16388081 (Version 1)
Quarter: 2019Q2

REPORT INFORMATION
  Report Type: Spontaneous
  Country: US (occurrence: US)
  Receive Date: 20190427
  Receipt Date: 20190427
  Transmission Date: 20190711
  Serious: Yes (Life-Threatening, Hospitalization, Other)
  Sender: FDA-Public Use
  Company Number: None

PATIENT
  Age: 70 Year
  Sex: Male
  Weight: 84.1 kg

DRUGS (1)
  1. CEFEPIME [Suspect]
     Active Substance: CEFEPIME HYDROCHLORIDE
     Indication: OSTEOMYELITIS
     Route: 042
     Dates: start: 20181107, end: 20190201

REACTIONS (6)
  - Nausea [None]
  - Acute kidney injury [None]
  - Hyperkalaemia [None]
  - Abdominal discomfort [None]
  - Feeding disorder [None]
  - Tubulointerstitial nephritis [None]

NARRATIVE: CASE EVENT DATE: 20190227
